FAERS Safety Report 18632252 (Version 1)
Quarter: 2020Q4

REPORT INFORMATION
  Report Type: Spontaneous
  Country: ID (occurrence: ID)
  Receive Date: 20201217
  Receipt Date: 20201217
  Transmission Date: 20210114
  Serious: No
  Sender: FDA-Public Use
  Company Number: ID-LUPIN PHARMACEUTICALS INC.-2020-09276

PATIENT
  Age: 72 Year
  Sex: Female

DRUGS (1)
  1. MORPHINE SULPHATE EXTENDED RELEASE TABLET 15 MG [Suspect]
     Active Substance: MORPHINE SULFATE
     Indication: CANCER PAIN
     Dosage: 15 MILLIGRAM, TID, (MORPHINE SLOW-RELEASE TABLET 3 X 15 MG/DAY)
     Route: 048

REACTIONS (3)
  - Constipation [Recovered/Resolved]
  - Somnolence [Recovered/Resolved]
  - Insomnia [Recovering/Resolving]
